FAERS Safety Report 10414029 (Version 1)
Quarter: 2014Q3

REPORT INFORMATION
  Report Type: Spontaneous
  Country: ES (occurrence: None)
  Receive Date: 20140825
  Receipt Date: 20140825
  Transmission Date: 20150326
  Serious: Yes (Disabling)
  Sender: FDA-Public Use
  Company Number: AUR-APL-2014-08995

PATIENT
  Sex: Female

DRUGS (3)
  1. SERTRALINE [Suspect]
     Active Substance: SERTRALINE HYDROCHLORIDE
     Indication: DEPRESSION
     Dates: start: 20140723, end: 20140804
  2. ATARAX /00058401/ (HYDROCYZINE) [Concomitant]
  3. ARALEVO (LEVOCETIRIZINE DIHYDROCHLORIDE) [Concomitant]

REACTIONS (7)
  - Movement disorder [None]
  - Pruritus [None]
  - Acne [None]
  - Oropharyngeal pain [None]
  - Pain [None]
  - Tachycardia [None]
  - Chest pain [None]
